FAERS Safety Report 8932104 (Version 2)
Quarter: 2013Q1

REPORT INFORMATION
  Report Type: Spontaneous
  Country: BR (occurrence: BR)
  Receive Date: 20121128
  Receipt Date: 20130125
  Transmission Date: 20140127
  Serious: Yes (Other)
  Sender: FDA-Public Use
  Company Number: BR-PFIZER INC-2012197334

PATIENT
  Age: 24 Year
  Sex: Female

DRUGS (1)
  1. NORDETTE-21 [Suspect]
     Indication: CONTRACEPTION
     Dosage: 1 DF, 1X/DAY, [LEVONORGESTREL 0.15MG]/[ETHINYL ESTRADIOL 0.03MG]
     Route: 048
     Dates: start: 2000

REACTIONS (5)
  - Premature separation of placenta [Unknown]
  - Haemorrhage in pregnancy [Recovered/Resolved]
  - Premature baby [Unknown]
  - Drug administration error [Unknown]
  - Unintended pregnancy [Unknown]
